FAERS Safety Report 23197776 (Version 1)
Quarter: 2023Q4

REPORT INFORMATION
  Report Type: Report from Study
  Country: FR (occurrence: FR)
  Receive Date: 20231117
  Receipt Date: 20231117
  Transmission Date: 20240110
  Serious: Yes (Other)
  Sender: FDA-Public Use
  Company Number: FR-JNJFOC-20211056623

PATIENT
  Age: 67 Year
  Sex: Male

DRUGS (5)
  1. BORTEZOMIB [Suspect]
     Active Substance: BORTEZOMIB
     Indication: Plasma cell myeloma
     Dosage: 1.8 MILLIGRAM, QW,4 WEEK/CYCLE
     Route: 065
     Dates: end: 20191209
  2. DEXAMETHASONE [Suspect]
     Active Substance: DEXAMETHASONE
     Indication: Plasma cell myeloma
     Dosage: 40 MILLIGRAM, QW(4 WEEK/CYCLE)
     Route: 065
     Dates: end: 20191209
  3. DEXAMETHASONE [Suspect]
     Active Substance: DEXAMETHASONE
     Dosage: 20 MILLIGRAM, BID, 4 WEEK/CYCLE
     Route: 065
     Dates: end: 20191209
  4. REVLIMID [Suspect]
     Active Substance: LENALIDOMIDE
     Indication: Plasma cell myeloma
     Dosage: 70 MILLIGRAM, QW(2 WEEK/CYCLE)
     Route: 065
     Dates: end: 20191209
  5. REVLIMID [Suspect]
     Active Substance: LENALIDOMIDE
     Dosage: 10 MILLIGRAM, 0.14  WEEK, 2 WEEK/CYCLE
     Route: 065
     Dates: end: 20191209

REACTIONS (3)
  - Drug hypersensitivity [Unknown]
  - Intentional product use issue [Unknown]
  - Off label use [Unknown]
